FAERS Safety Report 17341349 (Version 1)
Quarter: 2020Q1

REPORT INFORMATION
  Report Type: Spontaneous
  Country: US (occurrence: US)
  Receive Date: 20200114
  Receipt Date: 20200114
  Transmission Date: 20200409
  Serious: No
  Sender: FDA-Public Use
  Company Number: None

PATIENT
  Age: 67 Year
  Sex: Female
  Weight: 80.92 kg

DRUGS (16)
  1. VITAMIN C [Concomitant]
     Active Substance: ASCORBIC ACID
  2. HAIR SKIN + NAILS [Concomitant]
  3. LISINOPRIL. [Concomitant]
     Active Substance: LISINOPRIL
  4. VITAMIN A [Concomitant]
     Active Substance: VITAMIN A
  5. VITAL HERBS [Concomitant]
  6. CINNAMON. [Concomitant]
     Active Substance: CINNAMON
  7. POTASSIUM [Concomitant]
     Active Substance: POTASSIUM
  8. CHROMIUM [Concomitant]
     Active Substance: CHROMIC CHLORIDE\CHROMIUM
  9. IBUPROFEN. [Concomitant]
     Active Substance: IBUPROFEN
  10. VITAMIN D [Concomitant]
     Active Substance: VITAMIN D NOS
  11. SPIRONOLACTONE. [Concomitant]
     Active Substance: SPIRONOLACTONE
  12. ATORVASTATIN [Concomitant]
     Active Substance: ATORVASTATIN
  13. GARLIC. [Concomitant]
     Active Substance: GARLIC
  14. HYDROXYZINE PAM 25MG CAPS [Suspect]
     Active Substance: HYDROXYZINE PAMOATE
     Indication: ANXIETY
     Dosage: ?          QUANTITY:1 DF DOSAGE FORM;?
     Route: 048
     Dates: start: 20190911, end: 20191031
  15. BACLOFEN. [Concomitant]
     Active Substance: BACLOFEN
  16. CALCIUM [Concomitant]
     Active Substance: CALCIUM

REACTIONS (1)
  - Weight loss poor [None]

NARRATIVE: CASE EVENT DATE: 20190911
